FAERS Safety Report 17807043 (Version 1)
Quarter: 2020Q2

REPORT INFORMATION
  Report Type: Spontaneous
  Country: JP (occurrence: JP)
  Receive Date: 20200520
  Receipt Date: 20200520
  Transmission Date: 20200714
  Serious: Yes (Life-Threatening, Hospitalization, Other)
  Sender: FDA-Public Use
  Company Number: JP-AKRON, INC.-2083989

PATIENT
  Sex: Male

DRUGS (2)
  1. MIDAZOLAM HCL INJECTION [Suspect]
     Active Substance: MIDAZOLAM HYDROCHLORIDE
     Indication: SEDATION
     Route: 041
  2. DEXMEDETOMIDINE. [Concomitant]
     Active Substance: DEXMEDETOMIDINE

REACTIONS (3)
  - Cardiogenic shock [Recovering/Resolving]
  - Postresuscitation encephalopathy [Recovering/Resolving]
  - Poisoning [Recovering/Resolving]
